FAERS Safety Report 6476718-6 (Version None)
Quarter: 2009Q4

REPORT INFORMATION
  Report Type: 
  Country: None (occurrence: None)
  Receive Date: 20091207
  Receipt Date: 20091202
  Transmission Date: 20100525
  Serious: Yes (Other)
  Sender: FDA-Public Use
  Company Number: LB-ROXANE LABORATORIES, INC.-2009-RO-01201RO

PATIENT
  Age: 43 Year
  Sex: Male

DRUGS (3)
  1. CITALOPRAM HYDROBROMIDE [Suspect]
     Indication: ANTIDEPRESSANT THERAPY
     Dosage: 10 MG
  2. AMITRIPTYLINE [Concomitant]
     Dosage: 25 MG
  3. VALPROIC ACID [Concomitant]
     Dosage: 400 MG

REACTIONS (1)
  - MUSCULOSKELETAL CHEST PAIN [None]
